FAERS Safety Report 13831001 (Version 1)
Quarter: 2017Q3

REPORT INFORMATION
  Report Type: Spontaneous
  Country: US (occurrence: US)
  Receive Date: 20170803
  Receipt Date: 20170803
  Transmission Date: 20171127
  Serious: Yes (Other)
  Sender: FDA-Public Use
  Company Number: US-PFIZER INC-2017336193

PATIENT
  Sex: Female

DRUGS (2)
  1. METHOTREXATE SODIUM. [Suspect]
     Active Substance: METHOTREXATE SODIUM
     Dosage: 20 MG, WEEKLY
  2. XELJANZ XR [Suspect]
     Active Substance: TOFACITINIB CITRATE
     Dosage: UNK
     Dates: start: 201704

REACTIONS (20)
  - Insomnia [Unknown]
  - Ocular hyperaemia [Unknown]
  - Joint range of motion decreased [Unknown]
  - Fatigue [Unknown]
  - Headache [Unknown]
  - Sleep disorder [Unknown]
  - Carpal tunnel decompression [Unknown]
  - Fibromyalgia [Unknown]
  - Dry eye [Unknown]
  - Arthralgia [Unknown]
  - Musculoskeletal stiffness [Unknown]
  - Visual acuity reduced [Unknown]
  - Myalgia [Unknown]
  - Dry mouth [Unknown]
  - Asthenia [Unknown]
  - Muscular weakness [Unknown]
  - Sinus pain [Unknown]
  - Tenderness [Unknown]
  - Vitamin D deficiency [Unknown]
  - Blood glucose increased [Unknown]
